FAERS Safety Report 13453426 (Version 1)
Quarter: 2017Q2

REPORT INFORMATION
  Report Type: Spontaneous
  Country: US (occurrence: US)
  Receive Date: 20170418
  Receipt Date: 20170418
  Transmission Date: 20170830
  Serious: No
  Sender: FDA-Public Use
  Company Number: US-ALLERGAN-1666014US

PATIENT
  Sex: Male

DRUGS (1)
  1. LUMIGAN [Suspect]
     Active Substance: BIMATOPROST
     Indication: PRODUCT USED FOR UNKNOWN INDICATION

REACTIONS (6)
  - Deformity of orbit [Unknown]
  - Eye laser surgery [Unknown]
  - Impaired healing [Unknown]
  - Vision blurred [Unknown]
  - Eye discharge [Unknown]
  - Altered visual depth perception [Unknown]
